FAERS Safety Report 18625924 (Version 1)
Quarter: 2020Q4

REPORT INFORMATION
  Report Type: Report from Study
  Country: CO (occurrence: CO)
  Receive Date: 20201216
  Receipt Date: 20201216
  Transmission Date: 20210114
  Serious: Yes (Life-Threatening, Other)
  Sender: FDA-Public Use
  Company Number: CO-GILEAD-2020-0494221

PATIENT
  Age: 67 Year
  Sex: Female

DRUGS (15)
  1. MIDAZOLAM. [Concomitant]
     Active Substance: MIDAZOLAM
     Dosage: 180 MG
     Route: 042
     Dates: start: 20200901, end: 20200901
  2. MIDAZOLAM. [Concomitant]
     Active Substance: MIDAZOLAM
     Dosage: 120 UNK
     Route: 042
     Dates: start: 20200903, end: 20200903
  3. NOREPINEPHRINE. [Concomitant]
     Active Substance: NOREPINEPHRINE
     Dosage: 16 UNK
     Route: 042
     Dates: start: 20200903, end: 20200903
  4. FENTANYL. [Concomitant]
     Active Substance: FENTANYL
     Dosage: 12.5 MG
     Route: 042
     Dates: start: 20200901, end: 20200901
  5. NOREPINEPHRINE. [Concomitant]
     Active Substance: NOREPINEPHRINE
     Dosage: 8 MG
     Route: 042
     Dates: start: 20200901, end: 20200902
  6. FENTANYL. [Concomitant]
     Active Substance: FENTANYL
     Dosage: 9 UNK
     Route: 042
     Dates: start: 20200902, end: 20200902
  7. ROCURONIUM BROMIDE. [Concomitant]
     Active Substance: ROCURONIUM BROMIDE
     Dosage: 100 MG
     Route: 042
     Dates: start: 20200901, end: 20200902
  8. REMDESIVIR. [Suspect]
     Active Substance: REMDESIVIR
     Indication: COVID-19
     Dosage: 100 MG
     Route: 042
     Dates: start: 20200901, end: 20200910
  9. MIDAZOLAM. [Concomitant]
     Active Substance: MIDAZOLAM
     Dosage: 60 UNK
     Route: 042
     Dates: start: 20200902, end: 20200902
  10. PROPOFOL. [Concomitant]
     Active Substance: PROPOFOL
     Dosage: 100 MG
     Route: 042
     Dates: start: 20200901, end: 20200901
  11. CISATRACURIUM BESILATE [Concomitant]
     Active Substance: CISATRACURIUM BESYLATE
     Dosage: 400 MG
     Route: 051
     Dates: start: 20200901, end: 20200901
  12. CISATRACURIUM BESILATE [Concomitant]
     Active Substance: CISATRACURIUM BESYLATE
     Dosage: 300 UNK
     Route: 051
     Dates: start: 20200902
  13. DEXAMETHASONE. [Concomitant]
     Active Substance: DEXAMETHASONE
     Dosage: 6 MG
     Route: 042
     Dates: start: 20200902, end: 20200903
  14. FENTANYL. [Concomitant]
     Active Substance: FENTANYL
     Dosage: 6 UNK
     Route: 042
     Dates: start: 20200903, end: 20200903
  15. OMEPRAZOLE. [Concomitant]
     Active Substance: OMEPRAZOLE
     Dosage: 40 MG
     Route: 042
     Dates: start: 20200903, end: 20200903

REACTIONS (1)
  - Atrial fibrillation [Unknown]

NARRATIVE: CASE EVENT DATE: 20200903
